FAERS Safety Report 24754351 (Version 1)
Quarter: 2024Q4

REPORT INFORMATION
  Report Type: Spontaneous
  Country: GR (occurrence: GR)
  Receive Date: 20241219
  Receipt Date: 20241219
  Transmission Date: 20250115
  Serious: Yes (Other)
  Sender: MERCK
  Company Number: GR-009507513-2412GRC006499

PATIENT
  Age: 61 Year

DRUGS (1)
  1. KEYTRUDA [Suspect]
     Active Substance: PEMBROLIZUMAB
     Indication: Non-small cell lung cancer

REACTIONS (2)
  - Chylothorax [Unknown]
  - Hyperglycaemia [Unknown]
